FAERS Safety Report 8335354-7 (Version None)
Quarter: 2012Q2

REPORT INFORMATION
  Report Type: 
  Country: None (occurrence: None)
  Receive Date: 20120503
  Receipt Date: 20120424
  Transmission Date: 20120825
  Serious: Yes (Other)
  Sender: FDA-Public Use
  Company Number: US-ELI_LILLY_AND_COMPANY-US201204008827

PATIENT
  Age: 64 Year
  Sex: Female

DRUGS (6)
  1. METAMUCIL-2 [Concomitant]
  2. LANTUS [Concomitant]
     Indication: INSULIN-REQUIRING TYPE 2 DIABETES MELLITUS
     Dosage: UNK
     Dates: end: 20100101
  3. HYZAAR [Concomitant]
  4. BYETTA [Suspect]
     Indication: INSULIN-REQUIRING TYPE 2 DIABETES MELLITUS
     Route: 058
  5. GLYBURIDE [Concomitant]
  6. METFORMIN HCL [Concomitant]

REACTIONS (14)
  - TOE AMPUTATION [None]
  - GASTRIC BANDING [None]
  - CYSTITIS [None]
  - COUGH [None]
  - ABDOMINAL DISCOMFORT [None]
  - WEIGHT DECREASED [None]
  - CERVIX CARCINOMA STAGE IV [None]
  - GASTROINTESTINAL DISORDER [None]
  - NASOPHARYNGITIS [None]
  - RASH [None]
  - SKIN EXFOLIATION [None]
  - LOCALISED INFECTION [None]
  - INFECTION [None]
  - DRUG HYPERSENSITIVITY [None]
